FAERS Safety Report 23668522 (Version 3)
Quarter: 2024Q2

REPORT INFORMATION
  Report Type: Report from Study
  Country: CA (occurrence: None)
  Receive Date: 20240325
  Receipt Date: 20240415
  Transmission Date: 20240716
  Serious: Yes (Other)
  Sender: FDA-Public Use
  Company Number: 2024A068766

PATIENT
  Sex: Female

DRUGS (8)
  1. TEZSPIRE [Suspect]
     Active Substance: TEZEPELUMAB-EKKO
     Indication: Asthma
     Route: 058
     Dates: start: 20230313
  2. ASPIRIN [Concomitant]
     Active Substance: ASPIRIN
  3. SPIRIVA RESPIMAT [Concomitant]
     Active Substance: TIOTROPIUM BROMIDE
  4. ALVESCO [Concomitant]
     Active Substance: CICLESONIDE
  5. ADVAIR HFA [Concomitant]
     Active Substance: FLUTICASONE PROPIONATE\SALMETEROL XINAFOATE
  6. MOMETASONE [Concomitant]
     Active Substance: MOMETASONE
  7. SINGULAIR [Concomitant]
     Active Substance: MONTELUKAST SODIUM
  8. PREDNISONE [Concomitant]
     Active Substance: PREDNISONE

REACTIONS (3)
  - Adrenal insufficiency [Unknown]
  - Device use issue [Unknown]
  - Device defective [Unknown]
